FAERS Safety Report 6312526-4 (Version None)
Quarter: 2009Q3

REPORT INFORMATION
  Report Type: 
  Country: None (occurrence: None)
  Receive Date: 20090817
  Receipt Date: 20090209
  Transmission Date: 20100115
  Serious: Yes (Other)
  Sender: FDA-Public Use
  Company Number: US-PFIZER INC-2008053798

PATIENT
  Sex: Female
  Weight: 62.5 kg

DRUGS (6)
  1. GLIPIZIDE [Suspect]
     Dosage: 2.5 MG, 1X/DAY
     Dates: start: 20080501
  2. GLUCOTROL [Suspect]
  3. METFORMIN [Suspect]
  4. LANTUS [Concomitant]
     Dosage: 8 UNITS, UNK
  5. ASPIRIN [Concomitant]
  6. COZAAR [Concomitant]

REACTIONS (22)
  - ABDOMINAL DISTENSION [None]
  - ALOPECIA [None]
  - BLOOD CREATINE INCREASED [None]
  - BLOOD GLUCOSE INCREASED [None]
  - BURNING SENSATION [None]
  - CIRCUMSTANCE OR INFORMATION CAPABLE OF LEADING TO MEDICATION ERROR [None]
  - DIABETIC NEUROPATHY [None]
  - DRUG INTOLERANCE [None]
  - FULL BLOOD COUNT ABNORMAL [None]
  - HEART RATE INCREASED [None]
  - HYPERSENSITIVITY [None]
  - INSOMNIA [None]
  - MALAISE [None]
  - MUSCLE SPASMS [None]
  - NAUSEA [None]
  - NIGHT SWEATS [None]
  - PANIC ATTACK [None]
  - PERIPHERAL COLDNESS [None]
  - RED BLOOD CELL COUNT DECREASED [None]
  - RESPIRATORY DISORDER [None]
  - VITAMIN D DECREASED [None]
  - WEIGHT INCREASED [None]
